FAERS Safety Report 4526474-3 (Version None)
Quarter: 2004Q4

REPORT INFORMATION
  Report Type: 
  Country: None (occurrence: None)
  Receive Date: 20041214
  Receipt Date: 20020516
  Transmission Date: 20050328
  Serious: Yes (Death, Hospitalization, Disabling, Other)
  Sender: FDA-Public Use
  Company Number: US-MERCK-0205USA02090

PATIENT
  Age: 89 Year
  Sex: Female
  Weight: 55 kg

DRUGS (12)
  1. VIOXX [Suspect]
     Indication: MONARTHRITIS
     Route: 048
     Dates: start: 20000802, end: 20010701
  2. VIOXX [Suspect]
     Route: 048
     Dates: end: 20010901
  3. VIOXX [Suspect]
     Route: 048
     Dates: end: 20011103
  4. VIOXX [Suspect]
     Route: 048
     Dates: start: 19990701, end: 20000801
  5. LOPRESSOR [Concomitant]
     Indication: HYPERTENSION
     Route: 065
  6. LASIX [Concomitant]
     Indication: HYPERTENSION
     Route: 065
  7. DIGOXIN [Concomitant]
     Route: 065
  8. ASPIRIN [Concomitant]
     Indication: PROPHYLAXIS
     Route: 065
     Dates: start: 19990701, end: 20010701
  9. COUMADIN [Concomitant]
     Indication: ANTICOAGULANT THERAPY
     Route: 065
     Dates: end: 19990801
  10. DILTIAZEM HYDROCHLORIDE [Concomitant]
     Route: 065
  11. POTASSIUM (UNSPECIFIED) [Concomitant]
     Route: 065
  12. HYDROCHLOROTHIAZIDE AND TRIAMTERENE [Concomitant]
     Route: 065

REACTIONS (26)
  - ANAEMIA [None]
  - CARDIAC FAILURE CONGESTIVE [None]
  - CATARACT [None]
  - CELLULITIS [None]
  - CEREBRAL ARTERY OCCLUSION [None]
  - DEATH [None]
  - DEHYDRATION [None]
  - DEPRESSION [None]
  - DIARRHOEA [None]
  - EROSIVE DUODENITIS [None]
  - FALL [None]
  - FATIGUE [None]
  - GRAND MAL CONVULSION [None]
  - HAEMATOMA [None]
  - HYPERNATRAEMIA [None]
  - INJURY [None]
  - INTERNATIONAL NORMALISED RATIO INCREASED [None]
  - LOWER GASTROINTESTINAL HAEMORRHAGE [None]
  - MUSCLE NECROSIS [None]
  - PEPTIC ULCER HAEMORRHAGE [None]
  - PNEUMONIA [None]
  - SKIN LACERATION [None]
  - SKIN NECROSIS [None]
  - URINARY TRACT INFECTION [None]
  - WEIGHT DECREASED [None]
  - WOUND DEHISCENCE [None]
